FAERS Safety Report 8581363-2 (Version None)
Quarter: 2012Q3

REPORT INFORMATION
  Report Type: 
  Country: None (occurrence: None)
  Receive Date: 20120809
  Receipt Date: 20120808
  Transmission Date: 20120928
  Serious: Yes (Death)
  Sender: FDA-Public Use
  Company Number: PHHY2012NL056878

PATIENT
  Sex: Male
  Weight: 88 kg

DRUGS (5)
  1. ZOLADEX [Concomitant]
     Dosage: UNK UKN, UNK
  2. ZOMETA [Suspect]
     Indication: PROSTATE CANCER METASTATIC
     Dosage: 4 MG/100ML,  1X PER 28 DAYS
     Route: 042
     Dates: start: 20110608
  3. ZOMETA [Suspect]
     Dosage: 4 MG/100ML,  1X PER 28 DAYS
     Route: 042
     Dates: start: 20120702
  4. FENTANYL [Concomitant]
     Dosage: UNK UKN, UNK
  5. ZOMETA [Suspect]
     Dosage: 4 MG/100ML,  1X PER 28 DAYS
     Route: 042
     Dates: start: 20120605

REACTIONS (3)
  - FATIGUE [None]
  - GENERAL PHYSICAL HEALTH DETERIORATION [None]
  - DEATH [None]
